FAERS Safety Report 4404364-4 (Version None)
Quarter: 2004Q3

REPORT INFORMATION
  Report Type: 
  Country: None (occurrence: None)
  Receive Date: 20040719
  Receipt Date: 20040706
  Transmission Date: 20050211
  Serious: Yes (Other)
  Sender: FDA-Public Use
  Company Number: GB-JNJFOC-20040701128

PATIENT
  Age: 55 Year
  Sex: Female

DRUGS (8)
  1. REMICADE [Suspect]
     Indication: RHEUMATOID ARTHRITIS
     Dosage: 165 MG, INTRAVENOUS
     Route: 042
     Dates: start: 20020415, end: 20031015
  2. METHOTREXATE [Concomitant]
  3. VIOXX [Concomitant]
  4. PREDNISOLONE [Concomitant]
  5. DF 118 (DIHYDROCODEINE BITARTRATE) [Concomitant]
  6. CODEINE PHOSPHATE (CODEINE PHOSPHATE) [Concomitant]
  7. FOLIC ACID [Concomitant]
  8. HORMONE REPLACEMENT THERAPY (ANDROGENS AND FEMALE SEX HORMONES IN COMB [Concomitant]

REACTIONS (1)
  - PSYCHOTIC DISORDER [None]
